FAERS Safety Report 6531832-1 (Version None)
Quarter: 2010Q1

REPORT INFORMATION
  Report Type: 
  Country: None (occurrence: None)
  Receive Date: 20100108
  Receipt Date: 20100107
  Transmission Date: 20100710
  Serious: Yes (Other)
  Sender: FDA-Public Use
  Company Number: US-BRISTOL-MYERS SQUIBB COMPANY-14925853

PATIENT
  Age: 59 Year
  Sex: Male

DRUGS (3)
  1. COUMADIN [Suspect]
     Indication: ATRIAL FIBRILLATION
  2. COUMADIN [Suspect]
     Indication: DEEP VEIN THROMBOSIS
  3. LOVENOX [Suspect]
     Dates: start: 20080801

REACTIONS (1)
  - PULMONARY EMBOLISM [None]
